FAERS Safety Report 18025861 (Version 1)
Quarter: 2020Q3

REPORT INFORMATION
  Report Type: Report from Study
  Country: ES (occurrence: ES)
  Receive Date: 20200715
  Receipt Date: 20200715
  Transmission Date: 20201103
  Serious: Yes (Death, Life-Threatening)
  Sender: FDA-Public Use
  Company Number: ES-TEVA-2020-ES-1799298

PATIENT
  Age: 82 Year
  Sex: Male

DRUGS (5)
  1. KALETRA [Suspect]
     Active Substance: LOPINAVIR\RITONAVIR
     Indication: COVID-19 PNEUMONIA
     Dosage: 532 MG / 133.2 MG / DAY
     Dates: start: 20200330, end: 20200402
  2. LEVOFLOXACINO (2791A) [Suspect]
     Active Substance: LEVOFLOXACIN
     Indication: COVID-19 PNEUMONIA
     Dosage: 500 MG / DAY IV
     Route: 042
     Dates: start: 20200327, end: 20200329
  3. DOLQUINE [Suspect]
     Active Substance: HYDROXYCHLOROQUINE SULFATE
     Indication: COVID-19 PNEUMONIA
     Dosage: 800 MG ONE DAY, 400 MG 4 DAYS
     Dates: start: 20200329, end: 20200402
  4. DIGOXINA (770A) [Suspect]
     Active Substance: DIGOXIN
     Indication: HEART RATE INCREASED
     Dosage: 0.5 MG/IV
     Route: 042
     Dates: start: 20200331, end: 20200405
  5. AZITROMICINA (7019A) [Suspect]
     Active Substance: AZITHROMYCIN
     Indication: COVID-19 PNEUMONIA
     Dosage: 500 MG / DAY
     Dates: start: 20200329, end: 20200402

REACTIONS (6)
  - Tachycardia [Fatal]
  - Atrial fibrillation [Fatal]
  - Blood creatinine increased [Fatal]
  - Confusional state [Fatal]
  - Blood creatine phosphokinase MB increased [Fatal]
  - Anuria [Fatal]

NARRATIVE: CASE EVENT DATE: 20200331
